FAERS Safety Report 6476774-5 (Version None)
Quarter: 2009Q4

REPORT INFORMATION
  Report Type: 
  Country: None (occurrence: None)
  Receive Date: 20091207
  Receipt Date: 20091203
  Transmission Date: 20100525
  Serious: Yes (Death)
  Sender: FDA-Public Use
  Company Number: PHEH2009US10127

PATIENT
  Sex: Female

DRUGS (6)
  1. EXJADE [Suspect]
     Indication: MYELODYSPLASTIC SYNDROME
     Dosage: 1500 MG, QD
     Route: 048
     Dates: start: 20090813
  2. POTASSIUM [Concomitant]
  3. ZYPREXA [Concomitant]
  4. AUGMENTIN [Concomitant]
  5. ACYCLOVIR [Concomitant]
  6. ATENOLOL [Concomitant]

REACTIONS (6)
  - ANAEMIA [None]
  - DIARRHOEA [None]
  - MALIGNANT NEOPLASM PROGRESSION [None]
  - NAUSEA [None]
  - THROMBOCYTOPENIA [None]
  - VOMITING [None]
